FAERS Safety Report 12844587 (Version 1)
Quarter: 2016Q4

REPORT INFORMATION
  Report Type: Spontaneous
  Country: US (occurrence: US)
  Receive Date: 20161013
  Receipt Date: 20161013
  Transmission Date: 20170207
  Serious: No
  Sender: FDA-Public Use
  Company Number: US-ROCHE-1739832

PATIENT
  Age: 88 Year
  Sex: Female

DRUGS (1)
  1. ESBRIET [Suspect]
     Active Substance: PIRFENIDONE
     Indication: PRODUCT USED FOR UNKNOWN INDICATION
     Dosage: 2 CAPSULES THREE TIMES A DAY
     Route: 065
     Dates: end: 20160404

REACTIONS (5)
  - Headache [Unknown]
  - Constipation [Unknown]
  - Weight decreased [Unknown]
  - Abdominal pain [Unknown]
  - Decreased appetite [Unknown]
